FAERS Safety Report 12668014 (Version 1)
Quarter: 2016Q3

REPORT INFORMATION
  Report Type: Spontaneous
  Country: FR (occurrence: FR)
  Receive Date: 20160819
  Receipt Date: 20160819
  Transmission Date: 20161109
  Serious: Yes (Hospitalization, Other)
  Sender: FDA-Public Use
  Company Number: FR-MYLANLABS-2016M1029603

PATIENT

DRUGS (1)
  1. MYLAN-OMEPRAZOLE [Suspect]
     Active Substance: OMEPRAZOLE
     Indication: HYPERCHLORHYDRIA
     Dosage: 20 MG, QD

REACTIONS (4)
  - Musculoskeletal discomfort [Unknown]
  - Skin injury [Unknown]
  - Lymphadenopathy [Recovering/Resolving]
  - Inflammation [Recovering/Resolving]

NARRATIVE: CASE EVENT DATE: 20160708
